FAERS Safety Report 7570433-3 (Version None)
Quarter: 2011Q2

REPORT INFORMATION
  Report Type: 
  Country: None (occurrence: None)
  Receive Date: 20110624
  Receipt Date: 20110407
  Transmission Date: 20111010
  Serious: No
  Sender: FDA-Public Use
  Company Number: US-ALLERGAN-1009788US

PATIENT
  Age: 51 Year
  Sex: Female
  Weight: 51.701 kg

DRUGS (1)
  1. LATISSE [Suspect]
     Indication: GROWTH OF EYELASHES
     Dosage: 1 GTT, QHS
     Route: 061
     Dates: start: 20100725

REACTIONS (6)
  - EYELID OEDEMA [None]
  - DRY SKIN [None]
  - EYELID PAIN [None]
  - BLEPHAROPACHYNSIS [None]
  - SKIN HYPERPIGMENTATION [None]
  - EYE PRURITUS [None]
